FAERS Safety Report 4596724-6 (Version None)
Quarter: 2005Q1

REPORT INFORMATION
  Report Type: 
  Country: None (occurrence: None)
  Receive Date: 20050302
  Receipt Date: 20050214
  Transmission Date: 20050727
  Serious: Yes (Other)
  Sender: FDA-Public Use
  Company Number: GB-GLAXOSMITHKLINE-B0371446A

PATIENT
  Age: 71 Year
  Sex: Male
  Weight: 75.5 kg

DRUGS (2)
  1. SERETIDE [Suspect]
     Dosage: 250MCG UNKNOWN
     Route: 055
     Dates: start: 20020702
  2. NO CONCURRENT MEDICATION [Concomitant]

REACTIONS (3)
  - DIZZINESS [None]
  - LOSS OF CONSCIOUSNESS [None]
  - MUSCLE SPASMS [None]
